FAERS Safety Report 5450691-1 (Version None)
Quarter: 2007Q3

REPORT INFORMATION
  Report Type: 
  Country: None (occurrence: None)
  Receive Date: 20070910
  Receipt Date: 20070901
  Transmission Date: 20080115
  Serious: Yes (Other)
  Sender: FDA-Public Use
  Company Number: CHPA2007US09386

PATIENT
  Sex: Female

DRUGS (1)
  1. BENEFIBER SUGAR FREE (NCH)(WHEAT DEXTRIN) CHEWABLE TABLET [Suspect]
     Dosage: ORAL
     Route: 048
     Dates: start: 20070824, end: 20070831

REACTIONS (1)
  - VISION BLURRED [None]
